FAERS Safety Report 5647222-X (Version None)
Quarter: 2008Q1

REPORT INFORMATION
  Report Type: 
  Country: None (occurrence: None)
  Receive Date: 20080303
  Receipt Date: 20080221
  Transmission Date: 20080703
  Serious: Yes (Death)
  Sender: FDA-Public Use
  Company Number: PL-ROCHE-549082

PATIENT
  Age: 58 Year
  Sex: Female
  Weight: 47 kg

DRUGS (1)
  1. XELODA [Suspect]
     Dosage: DOSAGE REGIMEN 1 TO 14 DAY 2X1800 MG, THEN 7 DAYS OF BREAK
     Route: 048
     Dates: start: 20070914, end: 20080215

REACTIONS (7)
  - BREAST CANCER METASTATIC [None]
  - GASTROINTESTINAL HAEMORRHAGE [None]
  - METASTASES TO BONE [None]
  - METASTASES TO LIVER [None]
  - PANCYTOPENIA [None]
  - RESPIRATORY FAILURE [None]
  - SHOCK [None]
